FAERS Safety Report 23525382 (Version 2)
Quarter: 2024Q2

REPORT INFORMATION
  Report Type: Report from Study
  Country: US (occurrence: US)
  Receive Date: 20240215
  Receipt Date: 20240415
  Transmission Date: 20240715
  Serious: Yes (Other)
  Sender: FDA-Public Use
  Company Number: US-ABBVIE-5634071

PATIENT
  Age: 65 Year
  Sex: Male

DRUGS (1)
  1. RINVOQ [Suspect]
     Active Substance: UPADACITINIB
     Indication: Rheumatoid arthritis
     Route: 048

REACTIONS (6)
  - Dislocation of vertebra [Unknown]
  - COVID-19 [Unknown]
  - Neck pain [Unknown]
  - Back disorder [Unknown]
  - Single functional kidney [Unknown]
  - Back pain [Unknown]

NARRATIVE: CASE EVENT DATE: 20230813
